FAERS Safety Report 4449164-4 (Version None)
Quarter: 2004Q3

REPORT INFORMATION
  Report Type: 
  Country: None (occurrence: None)
  Receive Date: 20040910
  Receipt Date: 20040826
  Transmission Date: 20050211
  Serious: Yes (Hospitalization)
  Sender: FDA-Public Use
  Company Number: 8006296

PATIENT
  Age: 59 Year
  Sex: Male
  Weight: 80 kg

DRUGS (4)
  1. KEPPRA [Suspect]
     Indication: EPILEPSY
     Dosage: 2500 MG PO
     Route: 048
     Dates: start: 20020805
  2. NEURONTIN [Concomitant]
  3. ATACAND [Concomitant]
  4. ZYLORIC [Concomitant]

REACTIONS (15)
  - ANTINUCLEAR ANTIBODY POSITIVE [None]
  - APHASIA [None]
  - AUTOIMMUNE DISORDER [None]
  - BLOOD LACTATE DEHYDROGENASE INCREASED [None]
  - DERMATOMYOSITIS [None]
  - DIALYSIS [None]
  - GAIT DISTURBANCE [None]
  - GOITRE [None]
  - HYPERTHYROIDISM [None]
  - INFLUENZA LIKE ILLNESS [None]
  - PARANEOPLASTIC SYNDROME [None]
  - RENAL FAILURE [None]
  - URETERIC DILATATION [None]
  - VIRAL INFECTION [None]
  - VIRAL MYOSITIS [None]
